FAERS Safety Report 5071545-9 (Version None)
Quarter: 2006Q3

REPORT INFORMATION
  Report Type: 
  Country: None (occurrence: None)
  Receive Date: 20060803
  Receipt Date: 20060803
  Transmission Date: 20061208
  Serious: Yes (Hospitalization)
  Sender: FDA-Public Use
  Company Number: None

PATIENT
  Age: 72 Year
  Sex: Male
  Weight: 63 kg

DRUGS (1)
  1. FOSPHENYTOIN [Suspect]
     Indication: GRAND MAL CONVULSION
     Dosage: 900 MG IVPB ONCE
     Route: 042
     Dates: start: 20060424

REACTIONS (2)
  - BRADYCARDIA [None]
  - HYPOTENSION [None]
